FAERS Safety Report 5320815-5 (Version None)
Quarter: 2007Q2

REPORT INFORMATION
  Report Type: 
  Country: None (occurrence: None)
  Receive Date: 20070502
  Receipt Date: 20070419
  Transmission Date: 20071010
  Serious: Yes (Disabling)
  Sender: FDA-Public Use
  Company Number: RENA-12176

PATIENT
  Age: 63 Year
  Sex: Female

DRUGS (1)
  1. RENAGEL [Suspect]
     Indication: HYPERPHOSPHATAEMIA
     Dosage: 4.8 G PO
     Route: 048
     Dates: start: 20010101

REACTIONS (4)
  - ADHESION [None]
  - HAEMODIALYSIS [None]
  - NEUROPATHY [None]
  - PROCEDURAL COMPLICATION [None]
